FAERS Safety Report 25323387 (Version 1)
Quarter: 2025Q2

REPORT INFORMATION
  Report Type: Spontaneous
  Country: US (occurrence: None)
  Receive Date: 20250515
  Receipt Date: 20250515
  Transmission Date: 20250717
  Serious: Yes (Death)
  Sender: FDA-CTU
  Company Number: None

PATIENT
  Age: 80 Year
  Sex: Female

DRUGS (14)
  1. OFEV [Suspect]
     Active Substance: NINTEDANIB
     Indication: Interstitial lung disease
     Dosage: FREQUENCY : TWICE A DAY;?
     Route: 048
     Dates: start: 20220620, end: 20250408
  2. PIRFENIDONE [Suspect]
     Active Substance: PIRFENIDONE
  3. FUROSEMIDE [Concomitant]
     Active Substance: FUROSEMIDE
  4. ATROPINE OPHT DROP [Concomitant]
  5. HYDROMORPHONE [Concomitant]
     Active Substance: HYDROMORPHONE
  6. LORAZEPAM [Concomitant]
     Active Substance: LORAZEPAM
  7. BISACODYL RECT SUPP [Concomitant]
  8. SILVADENE TOP CREAM [Concomitant]
  9. ONDANSETRON [Concomitant]
     Active Substance: ONDANSETRON
  10. ACETAMINOPHEN RECT SUPP [Concomitant]
  11. SURGILUBE [Concomitant]
  12. HALOPERIDOL [Concomitant]
     Active Substance: HALOPERIDOL
  13. SENNOSIDES [Concomitant]
     Active Substance: SENNOSIDES
  14. ACETAMINOPHEN [Concomitant]
     Active Substance: ACETAMINOPHEN

REACTIONS (1)
  - Hospice care [None]

NARRATIVE: CASE EVENT DATE: 20250411
